FAERS Safety Report 15858676 (Version 7)
Quarter: 2019Q2

REPORT INFORMATION
  Report Type: Spontaneous
  Country: US (occurrence: US)
  Receive Date: 20190123
  Receipt Date: 20190625
  Transmission Date: 20190711
  Serious: Yes (Other)
  Sender: FDA-Public Use
  Company Number: US-PFIZER INC-2019026906

PATIENT
  Age: 18 Year
  Sex: Female

DRUGS (2)
  1. DEPO-PROVERA [Suspect]
     Active Substance: MEDROXYPROGESTERONE ACETATE
     Indication: CONTRACEPTION
     Dosage: UNK
     Route: 030
  2. DEPO-PROVERA [Suspect]
     Active Substance: MEDROXYPROGESTERONE ACETATE
     Indication: MENSTRUATION IRREGULAR

REACTIONS (6)
  - Drug ineffective [Unknown]
  - Bacterial vaginosis [Unknown]
  - Abdominal pain [Unknown]
  - Unintended pregnancy [Unknown]
  - Breast tenderness [Unknown]
  - Amenorrhoea [Unknown]
